FAERS Safety Report 5557364-5 (Version None)
Quarter: 2007Q4

REPORT INFORMATION
  Report Type: 
  Country: None (occurrence: None)
  Receive Date: 20071214
  Receipt Date: 20071129
  Transmission Date: 20080405
  Serious: Yes (Other)
  Sender: FDA-Public Use
  Company Number: JP-ASTRAZENECA-2007AP07235

PATIENT
  Age: 21793 Day
  Sex: Male

DRUGS (7)
  1. SEROQUEL [Suspect]
     Indication: SCHIZOPHRENIA
     Route: 048
     Dates: start: 20060107, end: 20071031
  2. SEROQUEL [Suspect]
     Route: 048
     Dates: start: 20071031, end: 20071106
  3. LEVOTOMIN [Concomitant]
     Route: 048
     Dates: start: 20051224
  4. NITRAZEPAM [Concomitant]
  5. LODOPIN [Concomitant]
     Route: 048
     Dates: start: 20051210
  6. SEPAZON [Concomitant]
     Route: 048
  7. AKINETON [Concomitant]
     Route: 048
     Dates: start: 20060701

REACTIONS (1)
  - HEPATIC FUNCTION ABNORMAL [None]
